FAERS Safety Report 12843314 (Version 1)
Quarter: 2016Q4

REPORT INFORMATION
  Report Type: Spontaneous
  Country: US (occurrence: US)
  Receive Date: 20161013
  Receipt Date: 20161013
  Transmission Date: 20170207
  Serious: No
  Sender: FDA-Public Use
  Company Number: US-ACTAVIS-2015-21469

PATIENT
  Sex: Female

DRUGS (1)
  1. GABAPENTIN (AELLC) [Suspect]
     Active Substance: GABAPENTIN
     Indication: DIABETIC NEUROPATHY
     Dosage: 1200 TO 1400MG, DAILY
     Route: 048
     Dates: end: 20150114

REACTIONS (2)
  - Drug ineffective [None]
  - Paraesthesia [Recovered/Resolved]
